FAERS Safety Report 7490792-X (Version None)
Quarter: 2011Q2

REPORT INFORMATION
  Report Type: 
  Country: None (occurrence: None)
  Receive Date: 20110519
  Receipt Date: 20110510
  Transmission Date: 20111010
  Serious: Yes (Hospitalization)
  Sender: FDA-Public Use
  Company Number: FR-AMGEN-FRASP2011021455

PATIENT
  Age: 37 Year
  Sex: Male
  Weight: 52 kg

DRUGS (3)
  1. ENBREL [Suspect]
     Indication: ANKYLOSING SPONDYLITIS
     Dosage: 25 MG, 2X/WEEK
     Route: 058
     Dates: start: 20061201, end: 20110201
  2. MORPHINE SULFATE [Concomitant]
     Dosage: 10 MG, UNK
     Route: 048
     Dates: start: 20020101
  3. MORPHINE SULFATE [Concomitant]
     Dosage: 10 MG, UNK
     Route: 048
     Dates: start: 20020101

REACTIONS (1)
  - RENAL CANCER [None]
